FAERS Safety Report 24136753 (Version 4)
Quarter: 2024Q3

REPORT INFORMATION
  Report Type: Spontaneous
  Country: EC (occurrence: EC)
  Receive Date: 20240725
  Receipt Date: 20240930
  Transmission Date: 20241016
  Serious: Yes (Life-Threatening, Hospitalization, Other)
  Sender: PFIZER
  Company Number: EC-PFIZER INC-PV202400093827

PATIENT
  Age: 45 Year
  Sex: Male
  Weight: 67 kg

DRUGS (18)
  1. METHOTREXATE SODIUM [Suspect]
     Active Substance: METHOTREXATE SODIUM
     Indication: High grade B-cell lymphoma Burkitt-like lymphoma stage IV
     Dosage: 2.076 MG, CYCLIC, (DAY 0) IV STAT 9550 MG IV IN 23 H, CYCLIC
     Route: 042
  2. RITUXIMAB [Concomitant]
     Active Substance: RITUXIMAB
     Indication: High grade B-cell lymphoma Burkitt-like lymphoma stage IV
     Dosage: UNK, CYCLIC (R-CODOX-M)
  3. RITUXIMAB [Concomitant]
     Active Substance: RITUXIMAB
     Dosage: UNK, CYCLIC (R-IVAC)
  4. CYCLOPHOSPHAMIDE [Concomitant]
     Active Substance: CYCLOPHOSPHAMIDE
     Indication: High grade B-cell lymphoma Burkitt-like lymphoma stage IV
     Dosage: UNK, CYCLIC
  5. DOXORUBICIN [Concomitant]
     Active Substance: DOXORUBICIN
     Indication: High grade B-cell lymphoma Burkitt-like lymphoma stage IV
     Dosage: UNK, CYCLIC
  6. VINCRISTINE [Concomitant]
     Active Substance: VINCRISTINE
     Indication: High grade B-cell lymphoma Burkitt-like lymphoma stage IV
     Dosage: UNK, CYCLIC
  7. IFOSFAMIDE [Concomitant]
     Active Substance: IFOSFAMIDE
     Indication: High grade B-cell lymphoma Burkitt-like lymphoma stage IV
     Dosage: UNK, CYCLIC
  8. ETOPOSIDE [Concomitant]
     Active Substance: ETOPOSIDE
     Indication: High grade B-cell lymphoma Burkitt-like lymphoma stage IV
     Dosage: UNK, CYCLIC
  9. CYTARABINE [Concomitant]
     Active Substance: CYTARABINE
     Indication: High grade B-cell lymphoma Burkitt-like lymphoma stage IV
     Dosage: UNK, CYCLIC
  10. ACYCLOVIR [Concomitant]
     Active Substance: ACYCLOVIR
     Indication: Prophylaxis
     Dosage: UNK
  11. COTRIMOXAZOLE [Concomitant]
     Active Substance: SULFAMETHOXAZOLE\TRIMETHOPRIM
     Indication: Prophylaxis
     Dosage: UNK
  12. SODIUM BICARBONATE [Concomitant]
     Active Substance: SODIUM BICARBONATE
     Indication: Urine alkalinisation therapy
     Dosage: INFUSION
  13. LEUCOVORIN [Concomitant]
     Active Substance: LEUCOVORIN\LEUCOVORIN CALCIUM
     Dosage: 350 MG IV STAT 20 MG IV EVERY 6 H
     Route: 042
  14. LEUCOVORIN [Concomitant]
     Active Substance: LEUCOVORIN\LEUCOVORIN CALCIUM
     Dosage: 20 MG, 4X/DAY
  15. LEUCOVORIN [Concomitant]
     Active Substance: LEUCOVORIN\LEUCOVORIN CALCIUM
     Dosage: 50 MG, 4X/DAY
  16. LEUCOVORIN [Concomitant]
     Active Substance: LEUCOVORIN\LEUCOVORIN CALCIUM
     Dosage: 100 MG, 4X/DAY
  17. LEUCOVORIN [Concomitant]
     Active Substance: LEUCOVORIN\LEUCOVORIN CALCIUM
     Dosage: 100 MG, 4X/DAY
  18. LEUCOVORIN [Concomitant]
     Active Substance: LEUCOVORIN\LEUCOVORIN CALCIUM
     Dosage: 100 MG, 4X/DAY

REACTIONS (13)
  - Renal failure [Recovering/Resolving]
  - Toxicity to various agents [Recovering/Resolving]
  - Mucosal haemorrhage [Recovering/Resolving]
  - Mucosal inflammation [Recovering/Resolving]
  - Pancytopenia [Recovering/Resolving]
  - Febrile neutropenia [Recovering/Resolving]
  - Multiple organ dysfunction syndrome [Recovering/Resolving]
  - Circulatory collapse [Recovering/Resolving]
  - Septic shock [Recovering/Resolving]
  - Hepatic failure [Recovering/Resolving]
  - Pneumonia [Recovering/Resolving]
  - Escherichia urinary tract infection [Recovering/Resolving]
  - Pathogen resistance [Recovering/Resolving]
